FAERS Safety Report 9475119 (Version 2)
Quarter: 2015Q4

REPORT INFORMATION
  Report Type: Report from Study
  Country: US (occurrence: US)
  Receive Date: 20130824
  Receipt Date: 20151102
  Transmission Date: 20160305
  Serious: Yes (Other)
  Sender: FDA-Public Use
  Company Number: US-ROCHE-1265051

PATIENT
  Sex: Female

DRUGS (22)
  1. MONTELUKAST SODIUM. [Concomitant]
     Active Substance: MONTELUKAST SODIUM
     Dosage: TAKE 1 TABLET DAILY.
     Route: 048
     Dates: start: 20130207
  2. NASONEX [Concomitant]
     Active Substance: MOMETASONE FUROATE
     Dosage: USE 1 SPRAY IN EACH NOSTRIL ONCE DAILY.
     Route: 065
     Dates: start: 20120620
  3. CETRIZINE [Concomitant]
     Active Substance: CETIRIZINE HYDROCHLORIDE
     Dosage: AT BEDTIME
     Route: 048
  4. SULFAMETHOXAZOLE TMP [Concomitant]
     Active Substance: SULFAMETHOXAZOLE\TRIMETHOPRIM
     Dosage: 800-160 MG
     Route: 048
     Dates: start: 20130712
  5. CYCLOSPORINE. [Concomitant]
     Active Substance: CYCLOSPORINE
     Dosage: TAKE 1 CAPSULE TWICE DAILY.
     Route: 048
     Dates: start: 20130207
  6. ZYRTEC [Concomitant]
     Active Substance: CETIRIZINE HYDROCHLORIDE
     Route: 048
     Dates: start: 20130430
  7. BENZONATATE. [Concomitant]
     Active Substance: BENZONATATE
     Dosage: EVERY 6 HOURS AS NEEDED
     Route: 048
     Dates: start: 20130328
  8. CLONAZEPAM. [Concomitant]
     Active Substance: CLONAZEPAM
     Dosage: AT BEDTIME
     Route: 048
     Dates: start: 20120620
  9. SINGULAIR [Concomitant]
     Active Substance: MONTELUKAST SODIUM
     Route: 048
     Dates: start: 20130430
  10. CARISOPRODOL. [Concomitant]
     Active Substance: CARISOPRODOL
     Dosage: TAKE 1 TABLET PRN
     Route: 065
     Dates: start: 20120620
  11. PREDNISONE. [Concomitant]
     Active Substance: PREDNISONE
     Dosage: TAKE 2 TABLETS DAILY.
     Route: 048
     Dates: start: 20130613
  12. PROZAC [Concomitant]
     Active Substance: FLUOXETINE HYDROCHLORIDE
     Dosage: TAKE 1 CAPSULE DAILY.
     Route: 048
     Dates: start: 20120928
  13. AZITHROMYCIN [Concomitant]
     Active Substance: AZITHROMYCIN ANHYDROUS
     Dosage: TAKE 1 TABLET DAILY AS DIRECTED
     Route: 048
     Dates: start: 20130712
  14. OMEPRAZOLE. [Concomitant]
     Active Substance: OMEPRAZOLE
     Dosage: TAKE 1 CAPSULE DAILY.
     Route: 065
     Dates: start: 20120620
  15. PREDNISONE. [Concomitant]
     Active Substance: PREDNISONE
     Dosage: AS NEEDED,.
     Route: 048
     Dates: start: 20130207
  16. SYMBICORT [Concomitant]
     Active Substance: BUDESONIDE\FORMOTEROL FUMARATE DIHYDRATE
     Dosage: INHALE 2 PUFFS TWICE A DAY, RINSE AFTER USE., 80-4.5 MCG
     Route: 065
     Dates: start: 20130207
  17. EST ESTROGEN-METHYLTEST HS [Concomitant]
     Dosage: TAKE 1 TABLET DAILY AS DIRECTED., 1.25 TO 2.5 MG
     Route: 048
     Dates: start: 20130805
  18. FLUOCINOLONE ACETONIDE 0.01% [Concomitant]
     Active Substance: FLUOCINOLONE ACETONIDE
     Dosage: APPLY TWICE A DAY AS DIRECTED.
     Route: 061
     Dates: start: 20121114
  19. LIDEX [Concomitant]
     Active Substance: FLUOCINONIDE
     Route: 061
     Dates: start: 20130328
  20. CEFUROXIME AXETIL. [Concomitant]
     Active Substance: CEFUROXIME AXETIL
     Dosage: TAKE 1 TABLET EVERY 12 HOURS DAILY.
     Route: 048
     Dates: start: 20130328
  21. XOLAIR [Suspect]
     Active Substance: OMALIZUMAB
     Indication: ASTHMA
     Route: 058
  22. ESTRADIOL. [Concomitant]
     Active Substance: ESTRADIOL
     Dosage: TAKE 1 TABLET DAILY AS DIRECTED.
     Route: 048
     Dates: start: 20130715

REACTIONS (19)
  - Hypogammaglobulinaemia [Unknown]
  - Pertussis [Unknown]
  - Glucose tolerance impaired [Unknown]
  - Tooth disorder [Unknown]
  - Narcolepsy [Unknown]
  - Bone pain [Unknown]
  - Nausea [Unknown]
  - Irritable bowel syndrome [Unknown]
  - Depression [Unknown]
  - Anxiety [Unknown]
  - Helicobacter infection [Unknown]
  - Rash [Unknown]
  - Vitamin D deficiency [Unknown]
  - Palpitations [Unknown]
  - Gastrooesophageal reflux disease [Unknown]
  - Cataplexy [Unknown]
  - Myopia [Unknown]
  - Blood pressure systolic increased [Unknown]
  - Bronchitis [Unknown]
